FAERS Safety Report 20458558 (Version 2)
Quarter: 2022Q1

REPORT INFORMATION
  Report Type: Spontaneous
  Country: US (occurrence: US)
  Receive Date: 20220211
  Receipt Date: 20220222
  Transmission Date: 20220424
  Serious: Yes (Hospitalization, Other)
  Sender: FDA-Public Use
  Company Number: US-Accord-253309

PATIENT
  Age: 7 Decade
  Sex: Female

DRUGS (2)
  1. CINACALCET [Interacting]
     Active Substance: CINACALCET
     Indication: Hypercalcaemia
     Dosage: INITIALLY 30 MG 3 TIMES IN A WEEK AND LATER INCREASED TO 30 MG DAILY.
     Route: 048
  2. CLOZAPINE [Interacting]
     Active Substance: CLOZAPINE
     Indication: Schizophrenia
     Dosage: A TOTAL OF 400 MG DAILY (150 MG IN THE MOMING AND 250 MG AT BEDTIME).

REACTIONS (2)
  - Torticollis [Recovered/Resolved]
  - Drug interaction [Unknown]
